FAERS Safety Report 21476694 (Version 1)
Quarter: 2022Q4

REPORT INFORMATION
  Report Type: Report from Study
  Country: ES (occurrence: ES)
  Receive Date: 20221019
  Receipt Date: 20221019
  Transmission Date: 20230112
  Serious: Yes (Hospitalization)
  Sender: FDA-Public Use
  Company Number: None

PATIENT
  Age: 52 Year
  Sex: Male

DRUGS (8)
  1. GEMCITABINE [Suspect]
     Active Substance: GEMCITABINE
     Indication: Product used for unknown indication
     Dosage: 1000 MG EFG, 1 VIAL
     Dates: start: 20211215
  2. ABRAXANE [Suspect]
     Active Substance: PACLITAXEL
     Indication: Product used for unknown indication
     Dosage: 5 MG/ML
     Dates: start: 20211215
  3. CINITAPRIDE [Concomitant]
     Active Substance: CINITAPRIDE
     Dosage: 1 MG, 1 TABLET EVERY 8 HOURS
     Dates: start: 20211215, end: 20220114
  4. POLYETHYLENE GLYCOL 4000 [Concomitant]
     Active Substance: POLYETHYLENE GLYCOL 4000
     Dosage: 10 G, 1 SACHET EVERY 24 HOURS, 20 SACHETS
     Dates: start: 20211207, end: 20220507
  5. METOCLOPRAMIDE [Concomitant]
     Active Substance: METOCLOPRAMIDE
     Dosage: 10 MG, 2 TABLETS EVERY 8 HOURS, 30 TABLET
     Dates: start: 20211215, end: 20220507
  6. OMEPRAZOLE [Concomitant]
     Active Substance: OMEPRAZOLE
     Dosage: 1 CAPSULE EVERY 24 HOURS, 20 MG 56CAPSULES
     Dates: start: 20211109, end: 20220508
  7. ZOLPIDEM [Concomitant]
     Active Substance: ZOLPIDEM TARTRATE
     Dosage: 10 MG, 1 TABLET EVERY 24 HOURS,  30 TABLETS
     Dates: start: 20210602, end: 20220507
  8. DEXAMETHASONE [Concomitant]
     Active Substance: DEXAMETHASONE
     Dosage: 4 MG, 1 TABLET EVERY 12 HOURS, 30 TABLETS
     Dates: start: 20211215, end: 20220101

REACTIONS (1)
  - Pancytopenia [Recovered/Resolved]

NARRATIVE: CASE EVENT DATE: 20211228
